FAERS Safety Report 7308513-X (Version None)
Quarter: 2011Q1

REPORT INFORMATION
  Report Type: 
  Country: None (occurrence: None)
  Receive Date: 20110223
  Receipt Date: 20101207
  Transmission Date: 20110831
  Serious: Yes (Other)
  Sender: FDA-Public Use
  Company Number: DE-BAYER-201044306GPV

PATIENT
  Sex: Female
  Weight: 62 kg

DRUGS (1)
  1. MIRENA [Suspect]
     Indication: PRODUCT USED FOR UNKNOWN INDICATION
     Dosage: 20 ?G (DAILY DOSE), CONT, INTRA-UTERINE
     Route: 015
     Dates: start: 20070501, end: 20100815

REACTIONS (7)
  - NERVOUSNESS [None]
  - PANIC ATTACK [None]
  - DIZZINESS [None]
  - DEPRESSION [None]
  - SUICIDAL IDEATION [None]
  - NAUSEA [None]
  - MENTAL DISORDER [None]
